FAERS Safety Report 5392931-3 (Version None)
Quarter: 2007Q3

REPORT INFORMATION
  Report Type: 
  Country: None (occurrence: None)
  Receive Date: 20070718
  Receipt Date: 20070703
  Transmission Date: 20080115
  Serious: Yes (Hospitalization)
  Sender: FDA-Public Use
  Company Number: GXKR2007GB05750

PATIENT
  Sex: Female
  Weight: 2.8577 kg

DRUGS (1)
  1. METHADONE HCL [Suspect]
     Dosage: TRANSPLACENTAL
     Route: 064

REACTIONS (4)
  - BRADYCARDIA NEONATAL [None]
  - DRUG EXPOSURE DURING PREGNANCY [None]
  - DRUG WITHDRAWAL SYNDROME NEONATAL [None]
  - ELECTROCARDIOGRAM QT PROLONGED [None]
